FAERS Safety Report 24980188 (Version 1)
Quarter: 2025Q1

REPORT INFORMATION
  Report Type: Spontaneous
  Country: US (occurrence: None)
  Receive Date: 20250214
  Receipt Date: 20250214
  Transmission Date: 20250409
  Serious: Yes (Life-Threatening, Other)
  Sender: FDA-CTU
  Company Number: None

PATIENT
  Age: 75 Year
  Sex: Female
  Weight: 57.15 kg

DRUGS (1)
  1. KISUNLA [Suspect]
     Active Substance: DONANEMAB-AZBT
     Indication: Dementia Alzheimer^s type
     Route: 042
     Dates: start: 20250115, end: 20250214

REACTIONS (6)
  - Anaphylactic reaction [None]
  - Infusion related reaction [None]
  - Presyncope [None]
  - Slow response to stimuli [None]
  - Blood pressure decreased [None]
  - Tremor [None]

NARRATIVE: CASE EVENT DATE: 20250214
